FAERS Safety Report 12081491 (Version 1)
Quarter: 2016Q1

REPORT INFORMATION
  Report Type: Spontaneous
  Country: ES (occurrence: ES)
  Receive Date: 20160216
  Receipt Date: 20160216
  Transmission Date: 20160526
  Serious: Yes (Hospitalization)
  Sender: FDA-Public Use
  Company Number: ES-MEDA-2016020034

PATIENT
  Age: 42 Year
  Sex: Female

DRUGS (4)
  1. EMCONCOR COR 2.5 MG [Suspect]
     Active Substance: BISOPROLOL FUMARATE
     Indication: CARDIAC FAILURE CONGESTIVE
     Dosage: 1-0-0
     Route: 048
     Dates: start: 20141106, end: 20141113
  2. ELECOR 25 MG [Suspect]
     Active Substance: EPLERENONE
     Indication: CARDIAC FAILURE CONGESTIVE
     Dosage: 1-0-0
     Route: 048
     Dates: start: 20141106, end: 20141113
  3. DILUTOL 10 MG [Suspect]
     Active Substance: TORSEMIDE
     Dosage: 1-0-0
     Route: 048
     Dates: start: 20141106, end: 20141113
  4. ENALAPRIL [Suspect]
     Active Substance: ENALAPRIL
     Indication: CARDIAC FAILURE CONGESTIVE
     Dosage: 5 MG EVERY 12 HOURS
     Route: 048
     Dates: start: 20141106, end: 20141113

REACTIONS (2)
  - Ischaemic hepatitis [Recovered/Resolved]
  - Drug interaction [Recovered/Resolved]

NARRATIVE: CASE EVENT DATE: 20141106
